FAERS Safety Report 10939962 (Version 1)
Quarter: 2015Q1

REPORT INFORMATION
  Report Type: Spontaneous
  Country: US (occurrence: None)
  Receive Date: 20150212
  Receipt Date: 20150212
  Transmission Date: 20150721
  Serious: No
  Sender: FDA-Public Use
  Company Number: TPA2011A00033

PATIENT
  Age: 44 Year
  Sex: Male
  Weight: 95.26 kg

DRUGS (3)
  1. ULORIC [Suspect]
     Active Substance: FEBUXOSTAT
     Indication: GOUT
     Route: 048
     Dates: start: 201004, end: 201005
  2. FISH OIL [Concomitant]
     Active Substance: FISH OIL
  3. ENALAPRIL [Concomitant]
     Active Substance: ENALAPRIL

REACTIONS (2)
  - Gout [None]
  - Drug ineffective [None]

NARRATIVE: CASE EVENT DATE: 201011
